FAERS Safety Report 4986588-0 (Version None)
Quarter: 2006Q2

REPORT INFORMATION
  Report Type: 
  Country: None (occurrence: None)
  Receive Date: 20060428
  Receipt Date: 20060217
  Transmission Date: 20061013
  Serious: Yes (Hospitalization, Disabling)
  Sender: FDA-Public Use
  Company Number: 2006PK00840

PATIENT
  Age: 61 Year
  Sex: Female
  Weight: 62 kg

DRUGS (3)
  1. BELOC ZOK MITE [Suspect]
     Indication: HYPERTENSION
     Route: 048
     Dates: start: 20020101
  2. BELOC ZOK MITE [Suspect]
     Route: 048
  3. ATACAND [Concomitant]
     Indication: HYPERTENSION
     Route: 048
     Dates: start: 20000101

REACTIONS (4)
  - DEAFNESS [None]
  - FEELING COLD [None]
  - PERIPHERAL VASCULAR DISORDER [None]
  - TINNITUS [None]
